FAERS Safety Report 6611735-4 (Version None)
Quarter: 2010Q1

REPORT INFORMATION
  Report Type: 
  Country: None (occurrence: None)
  Receive Date: 20100301
  Receipt Date: 20100301
  Transmission Date: 20100710
  Serious: Yes (Other)
  Sender: FDA-Public Use
  Company Number: None

PATIENT
  Sex: Male
  Weight: 131.0895 kg

DRUGS (1)
  1. LANTUS [Suspect]
     Indication: TYPE 2 DIABETES MELLITUS
     Dosage: 35 UNITS, INCREASE 5 U/3 DAYS DAILY AM ID
     Route: 023
     Dates: start: 20100216, end: 20100228

REACTIONS (4)
  - DEVICE FAILURE [None]
  - NO THERAPEUTIC RESPONSE [None]
  - PRODUCT MEASURED POTENCY ISSUE [None]
  - PRODUCT QUALITY ISSUE [None]
